FAERS Safety Report 8012506-7 (Version None)
Quarter: 2011Q4

REPORT INFORMATION
  Report Type: 
  Country: None (occurrence: None)
  Receive Date: 20111229
  Receipt Date: 20111221
  Transmission Date: 20120403
  Serious: Yes (Hospitalization)
  Sender: FDA-Public Use
  Company Number: US-BIOGENIDEC-2011BI043096

PATIENT
  Age: 58 Year
  Sex: Female

DRUGS (15)
  1. OXYBUTYNIN [Concomitant]
  2. AMPYRA [Concomitant]
  3. BACTRIM DS [Concomitant]
  4. ZANAFLEX [Concomitant]
  5. VITAMIN D [Concomitant]
     Route: 048
  6. VALIUM [Concomitant]
  7. SYNTHROID [Concomitant]
  8. TYSABRI [Suspect]
     Indication: MULTIPLE SCLEROSIS
     Route: 042
     Dates: start: 20110128
  9. PERCOCET [Concomitant]
     Route: 048
  10. RESTASIS [Concomitant]
     Route: 047
  11. PERCOCET [Concomitant]
     Route: 048
  12. CENTRUM SILVER [Concomitant]
  13. AMBIEN [Concomitant]
  14. CYANOCOBALAMIN [Concomitant]
     Route: 048
  15. ZANTAC [Concomitant]

REACTIONS (2)
  - MULTIPLE SCLEROSIS RELAPSE [None]
  - PSYCHOTIC DISORDER [None]
